FAERS Safety Report 12591082 (Version 2)
Quarter: 2016Q3

REPORT INFORMATION
  Report Type: Spontaneous
  Country: US (occurrence: US)
  Receive Date: 20160726
  Receipt Date: 20160726
  Transmission Date: 20161109
  Serious: No
  Sender: FDA-Public Use
  Company Number: US-UNITED THERAPEUTICS-UNT-2015-015973

PATIENT
  Age: 68 Year
  Sex: Female
  Weight: 49.89 kg

DRUGS (4)
  1. SILDENAFIL. [Concomitant]
     Active Substance: SILDENAFIL
     Indication: PRODUCT USED FOR UNKNOWN INDICATION
     Route: 065
  2. REMODULIN [Suspect]
     Active Substance: TREPROSTINIL
     Indication: PULMONARY HYPERTENSION
     Dosage: 0.031 ?G/KG, CONTINUING
     Route: 041
     Dates: start: 20121017
  3. TRACLEER [Concomitant]
     Active Substance: BOSENTAN
     Indication: PRODUCT USED FOR UNKNOWN INDICATION
     Route: 065
  4. REMODULIN [Suspect]
     Active Substance: TREPROSTINIL
     Dosage: 0.022 ?G/KG,CONTINUING
     Route: 041

REACTIONS (5)
  - Nausea [Unknown]
  - Malaise [Unknown]
  - Nasopharyngitis [Unknown]
  - Cough [Unknown]
  - Dyspepsia [Unknown]

NARRATIVE: CASE EVENT DATE: 201512
